FAERS Safety Report 21249641 (Version 2)
Quarter: 2022Q4

REPORT INFORMATION
  Report Type: Report from Study
  Country: KR (occurrence: KR)
  Receive Date: 20220824
  Receipt Date: 20221007
  Transmission Date: 20230113
  Serious: Yes (Hospitalization)
  Sender: FDA-Public Use
  Company Number: KR-ONO-2022KR022453

PATIENT
  Age: 60 Year
  Sex: Female
  Weight: 51 kg

DRUGS (33)
  1. IPILIMUMAB [Suspect]
     Active Substance: IPILIMUMAB
     Indication: Gastric cancer
     Route: 065
     Dates: start: 20220729, end: 20220729
  2. IPILIMUMAB [Suspect]
     Active Substance: IPILIMUMAB
     Route: 065
     Dates: start: 20220920, end: 20220920
  3. OXALIPLATIN [Suspect]
     Active Substance: OXALIPLATIN
     Indication: Gastric cancer
     Dosage: UNK MG/M2
     Route: 065
     Dates: start: 20220729, end: 20220729
  4. OXALIPLATIN [Suspect]
     Active Substance: OXALIPLATIN
     Route: 065
     Dates: start: 20220822, end: 20220822
  5. OXALIPLATIN [Suspect]
     Active Substance: OXALIPLATIN
     Route: 065
     Dates: start: 20220920, end: 20220920
  6. GIMERACIL\OTERACIL\TEGAFUR [Suspect]
     Active Substance: GIMERACIL\OTERACIL\TEGAFUR
     Indication: Gastric cancer
     Dosage: UNK
     Route: 065
     Dates: start: 20220729, end: 20220811
  7. GIMERACIL\OTERACIL\TEGAFUR [Suspect]
     Active Substance: GIMERACIL\OTERACIL\TEGAFUR
     Route: 065
     Dates: start: 20220730, end: 20220812
  8. GIMERACIL\OTERACIL\TEGAFUR [Suspect]
     Active Substance: GIMERACIL\OTERACIL\TEGAFUR
     Route: 065
     Dates: start: 20220822, end: 20220904
  9. GIMERACIL\OTERACIL\TEGAFUR [Suspect]
     Active Substance: GIMERACIL\OTERACIL\TEGAFUR
     Route: 065
     Dates: start: 20220823, end: 20220905
  10. FRAVASOL [Concomitant]
     Indication: Product used for unknown indication
     Dosage: 10% INJ 500ML
     Route: 065
  11. DEXAMETHASONE [Concomitant]
     Active Substance: DEXAMETHASONE
     Indication: Product used for unknown indication
     Dosage: 5MG/10ML
     Route: 065
     Dates: start: 20220914, end: 20220915
  12. Codeine guju [Concomitant]
     Indication: Product used for unknown indication
     Dosage: 3 DF
     Route: 065
     Dates: start: 20220729, end: 20220731
  13. MOSAPRIDE CITRATE [Concomitant]
     Active Substance: MOSAPRIDE CITRATE
     Indication: Product used for unknown indication
     Dosage: 3 DF
     Route: 048
     Dates: start: 20220731, end: 20220810
  14. MOSAPRIDE CITRATE [Concomitant]
     Active Substance: MOSAPRIDE CITRATE
     Route: 048
     Dates: start: 20220905
  15. REBAMIPIDE [Concomitant]
     Active Substance: REBAMIPIDE
     Indication: Product used for unknown indication
     Dosage: 3 DF
     Route: 048
     Dates: start: 20220731, end: 20220810
  16. REBAMIPIDE [Concomitant]
     Active Substance: REBAMIPIDE
     Dosage: 3 DF
     Route: 048
     Dates: start: 20220819
  17. PYRIDOXINE HYDROCHLORIDE [Concomitant]
     Active Substance: PYRIDOXINE HYDROCHLORIDE
     Indication: Product used for unknown indication
     Dosage: 1 MILLILITER
     Route: 065
     Dates: start: 20220819, end: 20220819
  18. ONDANSETRON [Concomitant]
     Active Substance: ONDANSETRON
     Indication: Product used for unknown indication
     Dosage: 8MG/4ML
     Route: 065
  19. MACPERAN [METOCLOPRAMIDE] [Concomitant]
     Indication: Product used for unknown indication
     Dosage: 10MG/2ML
  20. SMOFLIPID [Concomitant]
     Active Substance: FISH OIL\MEDIUM-CHAIN TRIGLYCERIDES\OLIVE OIL\SOYBEAN OIL
     Indication: Product used for unknown indication
     Dosage: 20% INJ 500ML
     Route: 065
  21. TRAMADOL HYDROCHLORIDE [Concomitant]
     Active Substance: TRAMADOL HYDROCHLORIDE
     Indication: Product used for unknown indication
     Dosage: 100MG/2ML
     Route: 065
  22. COUGH SYRUP [AMMONIUM CHLORIDE;CHLORPHENAMINE MALEATE;DIHYDROCODEINE B [Concomitant]
     Indication: Cough
     Dosage: 20ML/PACK
     Route: 065
  23. LAMINA-G [Concomitant]
     Indication: Product used for unknown indication
     Dosage: 20ML/PACK
     Route: 065
  24. PANTOPRAZOLE SODIUM [Concomitant]
     Active Substance: PANTOPRAZOLE SODIUM
     Indication: Product used for unknown indication
     Route: 065
  25. TIRAMIDE [Concomitant]
     Indication: Product used for unknown indication
     Route: 065
  26. LOPMIN [Concomitant]
     Indication: Product used for unknown indication
     Route: 065
  27. ACETAMINOPHEN [Concomitant]
     Active Substance: ACETAMINOPHEN
     Indication: Product used for unknown indication
     Route: 065
  28. OMAPONE PERI [Concomitant]
     Indication: Product used for unknown indication
     Dosage: 500 ML
     Route: 065
  29. GODEX [ADENINE HYDROCHLORIDE;BIFENDATE;CARNITINE OROTATE;CYANOCOBALAMI [Concomitant]
     Indication: Product used for unknown indication
     Route: 065
  30. URSODIOL [Concomitant]
     Active Substance: URSODIOL
     Indication: Product used for unknown indication
     Route: 065
  31. HELPOVIN [Concomitant]
     Indication: Product used for unknown indication
     Dosage: 5G/10ML
     Route: 065
  32. PENIRAMIN [Concomitant]
     Indication: Product used for unknown indication
     Dosage: 4MG/2ML
     Route: 065
  33. FILGRASTIM [Concomitant]
     Active Substance: FILGRASTIM
     Indication: Product used for unknown indication
     Dosage: 150MCG/0.6ML
     Route: 065

REACTIONS (2)
  - Pelvic pain [Recovering/Resolving]
  - Nausea [Recovered/Resolved]

NARRATIVE: CASE EVENT DATE: 20220802
